FAERS Safety Report 4571931-7 (Version None)
Quarter: 2005Q1

REPORT INFORMATION
  Report Type: 
  Country: None (occurrence: None)
  Receive Date: 20050202
  Receipt Date: 20050124
  Transmission Date: 20050727
  Serious: Yes (Hospitalization)
  Sender: FDA-Public Use
  Company Number: SUS1-2005-00044

PATIENT
  Age: 9 Year
  Sex: Male
  Weight: 49.9 kg

DRUGS (3)
  1. ADDERALL XR (DEXTROAMPHETAMINE SULFATE, DEXTROAMPHETAMINE SACCHARATE, [Suspect]
     Indication: PSYCHOMOTOR HYPERACTIVITY
     Dosage: SEE IMAGE
     Dates: start: 20040601, end: 20040701
  2. ADDERALL XR (DEXTROAMPHETAMINE SULFATE, DEXTROAMPHETAMINE SACCHARATE, [Suspect]
     Indication: PSYCHOMOTOR HYPERACTIVITY
     Dosage: SEE IMAGE
     Dates: start: 20040701, end: 20041001
  3. ADDERALL XR (DEXTROAMPHETAMINE SULFATE, DEXTROAMPHETAMINE SACCHARATE, [Suspect]
     Indication: PSYCHOMOTOR HYPERACTIVITY
     Dosage: SEE IMAGE
     Dates: start: 20041001, end: 20050119

REACTIONS (3)
  - AGGRESSION [None]
  - HALLUCINATION, AUDITORY [None]
  - SELF INJURIOUS BEHAVIOUR [None]
